FAERS Safety Report 5975089-9 (Version None)
Quarter: 2008Q4

REPORT INFORMATION
  Report Type: 
  Country: None (occurrence: None)
  Receive Date: 20081202
  Receipt Date: 20081127
  Transmission Date: 20090506
  Serious: Yes (Hospitalization)
  Sender: FDA-Public Use
  Company Number: JP-BRISTOL-MYERS SQUIBB COMPANY-14423792

PATIENT
  Age: 71 Year
  Sex: Female

DRUGS (9)
  1. TAXOL [Suspect]
     Indication: UTERINE CANCER
     Route: 041
     Dates: start: 20080310, end: 20080310
  2. PARAPLATIN [Suspect]
     Indication: UTERINE CANCER
     Dosage: 10MAR08-07MAY08
     Route: 041
     Dates: start: 20080507, end: 20080507
  3. FARMORUBICIN [Suspect]
     Indication: UTERINE CANCER
     Dosage: 10MAR08-07MAY08
     Route: 041
     Dates: start: 20080507, end: 20080507
  4. DEXAMETHASONE SODIUM PHOSPHATE [Concomitant]
     Route: 042
     Dates: start: 20080310, end: 20080310
  5. DIPHENHYDRAMINE HCL [Concomitant]
     Route: 048
     Dates: start: 20080310, end: 20080310
  6. RANITIDINE HCL [Concomitant]
     Route: 042
     Dates: start: 20080310, end: 20080310
  7. NEU-UP [Concomitant]
     Route: 058
     Dates: start: 20080321, end: 20080519
  8. ZOFRAN [Concomitant]
     Route: 042
     Dates: start: 20080310, end: 20080507
  9. NASEA [Concomitant]
     Route: 048
     Dates: start: 20080311, end: 20080512

REACTIONS (3)
  - DEPRESSION [None]
  - INSOMNIA [None]
  - NAUSEA [None]
